FAERS Safety Report 9016412 (Version 1)
Quarter: 2013Q1

REPORT INFORMATION
  Report Type: Spontaneous
  Country: US (occurrence: US)
  Receive Date: 20130116
  Receipt Date: 20130116
  Transmission Date: 20140127
  Serious: Yes (Other)
  Sender: FDA-Public Use
  Company Number: US-GLAXOSMITHKLINE-A1004807A

PATIENT
  Age: 59 Year
  Sex: Female

DRUGS (8)
  1. TYKERB [Suspect]
     Indication: BREAST CANCER FEMALE
     Dosage: 250MG UNKNOWN
     Route: 048
     Dates: start: 20120713, end: 20121126
  2. PERCOCET [Concomitant]
  3. ATIVAN [Concomitant]
  4. FLONASE [Concomitant]
  5. PRILOSEC [Concomitant]
  6. CLARITIN [Concomitant]
  7. HYDROXYZINE PAMOATE [Concomitant]
  8. PROZAC [Concomitant]

REACTIONS (3)
  - Breast cancer metastatic [Unknown]
  - Disease progression [Unknown]
  - Drug ineffective [Unknown]
